FAERS Safety Report 18523155 (Version 1)
Quarter: 2020Q4

REPORT INFORMATION
  Report Type: Spontaneous
  Country: US (occurrence: US)
  Receive Date: 20201119
  Receipt Date: 20201119
  Transmission Date: 20210114
  Serious: No
  Sender: FDA-Public Use
  Company Number: US-NOVOPROD-754734

PATIENT
  Age: 76 Year
  Sex: Female

DRUGS (1)
  1. NOVOLOG MIX 70/30 [Suspect]
     Active Substance: INSULIN ASPART
     Indication: TYPE 2 DIABETES MELLITUS
     Dosage: 40 IU, BID (MORNING AND EVENING, BEEN ON FOR 4 YEARS)
     Route: 058
     Dates: start: 2016

REACTIONS (4)
  - Fall [Recovered/Resolved]
  - Joint stiffness [Recovered/Resolved]
  - Joint injury [Recovered/Resolved]
  - Contusion [Recovered/Resolved]

NARRATIVE: CASE EVENT DATE: 20200914
